FAERS Safety Report 10082700 (Version 1)
Quarter: 2014Q2

REPORT INFORMATION
  Report Type: Spontaneous
  Country: US (occurrence: US)
  Receive Date: 20140416
  Receipt Date: 20140416
  Transmission Date: 20141212
  Serious: No
  Sender: FDA-Public Use
  Company Number: US-BAXTER-2014BAX015922

PATIENT
  Sex: 0

DRUGS (1)
  1. 15% CLINISOL? - SULFITE-FREE (AMINO ACID) INJECTION [Suspect]
     Indication: PRODUCT USED FOR UNKNOWN INDICATION
     Route: 065

REACTIONS (3)
  - Angioedema [Unknown]
  - Rash [Unknown]
  - Pruritus [Unknown]
